FAERS Safety Report 14542200 (Version 3)
Quarter: 2019Q1

REPORT INFORMATION
  Report Type: Report from Study
  Country: None (occurrence: US)
  Receive Date: 20180216
  Receipt Date: 20190306
  Transmission Date: 20190417
  Serious: Yes (Death, Hospitalization)
  Sender: FDA-Public Use
  Company Number: US-VIFOR (INTERNATIONAL) INC.-VIT-2018-01613

PATIENT
  Age: 46 Year
  Sex: Female

DRUGS (12)
  1. DULOXETINE. [Concomitant]
     Active Substance: DULOXETINE
  2. RANITIDINE. [Concomitant]
     Active Substance: RANITIDINE
  3. BUPROPION. [Concomitant]
     Active Substance: BUPROPION
  4. PRAVASTATIN. [Concomitant]
     Active Substance: PRAVASTATIN
  5. VELTASSA [Suspect]
     Active Substance: PATIROMER
  6. ASPIRIN EC [Concomitant]
     Active Substance: ASPIRIN
  7. IRON [Concomitant]
     Active Substance: IRON
  8. VELTASSA [Suspect]
     Active Substance: PATIROMER
     Indication: HYPERKALAEMIA
     Route: 048
     Dates: start: 201710
  9. HUMALOG [Concomitant]
     Active Substance: INSULIN LISPRO
  10. OMEPRAZOLE. [Concomitant]
     Active Substance: OMEPRAZOLE
  11. VITAMIN D3 [Concomitant]
     Active Substance: CHOLECALCIFEROL
  12. LANTUS [Concomitant]
     Active Substance: INSULIN GLARGINE

REACTIONS (4)
  - Hyponatraemia [Recovered/Resolved]
  - Blood glucose increased [Recovered/Resolved]
  - Hypokalaemia [Recovered/Resolved]
  - Death [Fatal]

NARRATIVE: CASE EVENT DATE: 20180206
